FAERS Safety Report 21936986 (Version 1)
Quarter: 2023Q1

REPORT INFORMATION
  Report Type: Spontaneous
  Country: US (occurrence: None)
  Receive Date: 20230131
  Receipt Date: 20230131
  Transmission Date: 20230418
  Serious: Yes (Disabling, Other)
  Sender: FDA-Public Use
  Company Number: None

PATIENT
  Age: 34 Year
  Sex: Female
  Weight: 61.65 kg

DRUGS (12)
  1. MAKENA [Suspect]
     Active Substance: HYDROXYPROGESTERONE CAPROATE
     Indication: Premature labour
     Dosage: FREQUENCY : WEEKLY;?
     Route: 030
     Dates: start: 20201103, end: 20210316
  2. ARMOUR THYROID [Concomitant]
     Active Substance: THYROID, PORCINE
  3. LEVOTHYROXINE [Concomitant]
     Active Substance: LEVOTHYROXINE
  4. APRISO [Concomitant]
     Active Substance: MESALAMINE
  5. Spirnonlactone [Concomitant]
  6. Amatriptyline [Concomitant]
  7. FLUOXETINE [Concomitant]
     Active Substance: FLUOXETINE HYDROCHLORIDE
  8. VITAMINS [Concomitant]
     Active Substance: VITAMINS
  9. BIOTIN [Concomitant]
     Active Substance: BIOTIN
  10. HERBALS\TURMERIC [Concomitant]
     Active Substance: HERBALS\TURMERIC
  11. VITAMIN D NOS [Concomitant]
     Active Substance: VITAMIN D NOS
  12. VITAMIN B12 [Concomitant]
     Active Substance: CYANOCOBALAMIN

REACTIONS (10)
  - Injection site mass [None]
  - Injection site pain [None]
  - Hypertonic bladder [None]
  - Urethritis [None]
  - Hormone level abnormal [None]
  - Maternal exposure during pregnancy [None]
  - Foetal exposure during pregnancy [None]
  - Dysuria [None]
  - Hyperhidrosis [None]
  - Gait disturbance [None]

NARRATIVE: CASE EVENT DATE: 20201230
